FAERS Safety Report 19844819 (Version 1)
Quarter: 2021Q3

REPORT INFORMATION
  Report Type: Spontaneous
  Country: JP (occurrence: JP)
  Receive Date: 20210916
  Receipt Date: 20210916
  Transmission Date: 20211014
  Serious: Yes (Death, Hospitalization)
  Sender: FDA-Public Use
  Company Number: JP-ASTRAZENECA-2021A727517

PATIENT
  Age: 79 Year
  Sex: Male
  Weight: 65.6 kg

DRUGS (13)
  1. TAKECAB [Concomitant]
     Active Substance: VONOPRAZAN FUMARATE
     Dosage: UNKNOWN
     Route: 065
     Dates: end: 20210323
  2. ROSUVASTATIN. [Suspect]
     Active Substance: ROSUVASTATIN
     Indication: ANGINA PECTORIS
     Route: 048
     Dates: end: 20210323
  3. OPDIVO [Suspect]
     Active Substance: NIVOLUMAB
     Indication: LUNG ADENOCARCINOMA RECURRENT
     Route: 041
     Dates: start: 20210303, end: 20210303
  4. JANUVIA [Concomitant]
     Active Substance: SITAGLIPTIN PHOSPHATE
     Route: 048
     Dates: end: 20210323
  5. ROSUVASTATIN. [Suspect]
     Active Substance: ROSUVASTATIN
     Indication: HYPERLIPIDAEMIA
     Route: 048
     Dates: end: 20210323
  6. YERVOY [Suspect]
     Active Substance: IPILIMUMAB
     Indication: LUNG ADENOCARCINOMA RECURRENT
     Route: 041
     Dates: start: 20210303, end: 20210303
  7. LUSEFI [Concomitant]
     Active Substance: LUSEOGLIFLOZIN
     Route: 048
     Dates: end: 20210323
  8. ADALAT CC [Concomitant]
     Active Substance: NIFEDIPINE
     Dosage: UNKNOWN
     Route: 065
     Dates: end: 20210323
  9. MICARDIS [Concomitant]
     Active Substance: TELMISARTAN
     Dosage: 1 PERCENT 5 ML / HR WAS ADMINISTERED
     Route: 041
     Dates: end: 20210323
  10. LIDOCAINE. [Concomitant]
     Active Substance: LIDOCAINE
     Dosage: UNKNOWN
     Route: 065
  11. BUFFERIN [Concomitant]
     Active Substance: ASPIRIN
     Dosage: UNKNOWN
     Route: 065
     Dates: end: 20210323
  12. PYRINE [Concomitant]
     Dosage: UNKNOWN
     Route: 065
  13. PREDONINE [Concomitant]
     Active Substance: PREDNISOLONE
     Dosage: UNKNOWN
     Route: 065

REACTIONS (2)
  - Myocarditis [Fatal]
  - Myositis [Fatal]

NARRATIVE: CASE EVENT DATE: 20210320
